FAERS Safety Report 12206912 (Version 1)
Quarter: 2016Q1

REPORT INFORMATION
  Report Type: Spontaneous
  Country: US (occurrence: None)
  Receive Date: 20160323
  Receipt Date: 20160323
  Transmission Date: 20160526
  Serious: No
  Sender: FDA-Public Use
  Company Number: None

PATIENT
  Age: 51 Year
  Sex: Female

DRUGS (1)
  1. VICODIN [Suspect]
     Active Substance: ACETAMINOPHEN\HYDROCODONE BITARTRATE
     Indication: PROCEDURAL PAIN
     Dosage: 1 TABLET EVERY 4HR FOR PAIN PRN/AS NEEDED ORAL
     Route: 048
     Dates: start: 20160311, end: 20160311

REACTIONS (2)
  - Drug ineffective [None]
  - Suspected counterfeit product [None]

NARRATIVE: CASE EVENT DATE: 20160311
